FAERS Safety Report 11011848 (Version 4)
Quarter: 2015Q2

REPORT INFORMATION
  Report Type: Spontaneous
  Country: PT (occurrence: PT)
  Receive Date: 20150410
  Receipt Date: 20150602
  Transmission Date: 20150821
  Serious: Yes (Other)
  Sender: FDA-Public Use
  Company Number: PT-GILEAD-2014-0126187

PATIENT
  Age: 70 Year
  Sex: Female

DRUGS (5)
  1. DACLATASVIR [Suspect]
     Active Substance: DACLATASVIR
     Indication: HEPATITIS C
     Dosage: UNK
     Route: 065
  2. LORAZEPAM. [Concomitant]
     Active Substance: LORAZEPAM
     Dosage: UNK
     Route: 065
  3. SOFOSBUVIR [Suspect]
     Active Substance: SOFOSBUVIR
     Indication: HEPATITIS C
     Dosage: UNK
     Route: 065
     Dates: end: 201411
  4. ROSUVASTATIN [Concomitant]
     Active Substance: ROSUVASTATIN
     Dosage: UNK
     Route: 065
  5. AMIODARONE [Suspect]
     Active Substance: AMIODARONE
     Indication: ARRHYTHMIA
     Dosage: UNK
     Route: 065

REACTIONS (5)
  - Bradycardia [Recovered/Resolved]
  - Drug interaction [Unknown]
  - Fatigue [Unknown]
  - Cardiac disorder [Unknown]
  - Dyspnoea [Unknown]
